FAERS Safety Report 7307771-5 (Version None)
Quarter: 2011Q1

REPORT INFORMATION
  Report Type: 
  Country: None (occurrence: None)
  Receive Date: 20110223
  Receipt Date: 20110215
  Transmission Date: 20110831
  Serious: Yes (Hospitalization)
  Sender: FDA-Public Use
  Company Number: MT-ROXANE LABORATORIES, INC.-2011-RO-00187RO

PATIENT
  Age: 36 Year
  Sex: Male

DRUGS (8)
  1. LITHIUM CARBONATE [Suspect]
     Dosage: 200 MG
     Dates: start: 20090401, end: 20090601
  2. MIANSERIN [Suspect]
     Dosage: 60 MG
  3. PAROXETINE HCL [Suspect]
     Dosage: 60 MG
  4. LITHIUM CARBONATE [Suspect]
     Dosage: 400 MG
     Dates: start: 20090301, end: 20090401
  5. AMLODIPINE [Suspect]
     Indication: HYPERTENSION
     Dosage: 5 MG
  6. CLOZAPINE [Suspect]
  7. LITHIUM CARBONATE [Suspect]
     Dosage: 600 MG
     Dates: end: 20090301
  8. DIAZOXIDE [Suspect]
     Dosage: 600 MG
     Dates: start: 20090310

REACTIONS (5)
  - PYREXIA [None]
  - MYALGIA [None]
  - DYSPNOEA [None]
  - ASTHENIA [None]
  - HYPOGLYCAEMIA [None]
